FAERS Safety Report 4591231-9 (Version None)
Quarter: 2005Q1

REPORT INFORMATION
  Report Type: 
  Country: None (occurrence: None)
  Receive Date: 20050223
  Receipt Date: 20050223
  Transmission Date: 20050727
  Serious: Yes (Other)
  Sender: FDA-Public Use
  Company Number: None

PATIENT
  Sex: Male
  Weight: 72.5755 kg

DRUGS (4)
  1. OXYCODENE GENERIC (OXYCODONE) [Suspect]
     Indication: PANCREATIC DISORDER
     Dosage: 80 MG  7 X  1 DAY
     Dates: start: 20041101
  2. PRILOSEC [Concomitant]
  3. WELLBUTRIN [Concomitant]
  4. STOOL SOFTENER [Concomitant]

REACTIONS (3)
  - DERMATITIS [None]
  - INFLAMMATION [None]
  - RASH [None]
